FAERS Safety Report 14737981 (Version 1)
Quarter: 2018Q2

REPORT INFORMATION
  Report Type: Spontaneous
  Country: US (occurrence: US)
  Receive Date: 20180409
  Receipt Date: 20180409
  Transmission Date: 20180711
  Serious: No
  Sender: FDA-Public Use
  Company Number: US-SHIRE-US201813184

PATIENT

DRUGS (1)
  1. VYVANSE [Suspect]
     Active Substance: LISDEXAMFETAMINE DIMESYLATE
     Indication: ATTENTION DEFICIT/HYPERACTIVITY DISORDER
     Dosage: 50 MG, UNK
     Route: 048
     Dates: start: 2013

REACTIONS (6)
  - Dizziness [Unknown]
  - Blood pressure increased [Unknown]
  - Feeling abnormal [Unknown]
  - Product taste abnormal [Unknown]
  - Ill-defined disorder [Unknown]
  - Off label use [Unknown]
